FAERS Safety Report 13556785 (Version 1)
Quarter: 2017Q2

REPORT INFORMATION
  Report Type: Spontaneous
  Country: US (occurrence: US)
  Receive Date: 20170517
  Receipt Date: 20170517
  Transmission Date: 20170830
  Serious: No
  Sender: FDA-Public Use
  Company Number: US-SA-2017SA073626

PATIENT
  Age: 68 Year
  Sex: Male

DRUGS (4)
  1. SOLOSTAR [Concomitant]
     Active Substance: DEVICE
     Dates: start: 20170101
  2. TOUJEO [Suspect]
     Active Substance: INSULIN GLARGINE
     Indication: TYPE 2 DIABETES MELLITUS
     Dosage: DOSE:30 UNIT(S)
     Route: 065
     Dates: start: 20170101
  3. HUMALOG [Concomitant]
     Active Substance: INSULIN LISPRO
     Dosage: AT MEALS
  4. METFORMIN [Concomitant]
     Active Substance: METFORMIN HYDROCHLORIDE

REACTIONS (7)
  - Oedema peripheral [Unknown]
  - Myalgia [Unknown]
  - Paraesthesia [Unknown]
  - Muscle spasms [Unknown]
  - Blood glucose increased [Unknown]
  - Gait disturbance [Unknown]
  - Pain in extremity [Unknown]
